FAERS Safety Report 16122256 (Version 1)
Quarter: 2019Q2

REPORT INFORMATION
  Report Type: Spontaneous
  Country: US (occurrence: US)
  Receive Date: 20190326
  Receipt Date: 20190326
  Transmission Date: 20190711
  Serious: Yes (Other)
  Sender: FDA-Public Use
  Company Number: None

PATIENT
  Sex: Female

DRUGS (1)
  1. PHENERGAN [Suspect]
     Active Substance: PROMETHAZINE HYDROCHLORIDE

REACTIONS (4)
  - Burning sensation [None]
  - Infusion related reaction [None]
  - Pain in extremity [None]
  - Wrong technique in product usage process [None]

NARRATIVE: CASE EVENT DATE: 20190311
